FAERS Safety Report 4337462-4 (Version None)
Quarter: 2004Q2

REPORT INFORMATION
  Report Type: 
  Country: None (occurrence: None)
  Receive Date: 20040408
  Receipt Date: 20040330
  Transmission Date: 20050107
  Serious: Yes (Hospitalization)
  Sender: FDA-Public Use
  Company Number: GB-JNJFOC-20040306370

PATIENT
  Age: 52 Year
  Sex: Female

DRUGS (10)
  1. REMICADE [Suspect]
     Indication: RHEUMATOID ARTHRITIS
     Dosage: 300 MG, INTRAVENOUS
     Route: 042
     Dates: start: 20021003
  2. PREDNISOLONE [Concomitant]
  3. METHOTREXATE [Concomitant]
  4. CAPOZIDE (CAPOZIDE) [Concomitant]
  5. SULPHASALZINE (SULFASALAZINE) [Concomitant]
  6. AMLODIPINE [Concomitant]
  7. MOXONIDINE (MOXONIDINE) [Concomitant]
  8. CO-DYDRAMOL (PARAMOL-118) [Concomitant]
  9. IBUPROFEN [Concomitant]
  10. FOLIC ACID [Concomitant]

REACTIONS (1)
  - GASTRIC ULCER [None]
